FAERS Safety Report 5478504-2 (Version None)
Quarter: 2007Q4

REPORT INFORMATION
  Report Type: 
  Country: None (occurrence: None)
  Receive Date: 20071005
  Receipt Date: 20070926
  Transmission Date: 20080405
  Serious: Yes (Other)
  Sender: FDA-Public Use
  Company Number: US-ROCHE-521802

PATIENT
  Age: 67 Year
  Sex: Female

DRUGS (11)
  1. XELODA [Suspect]
     Indication: BREAST CANCER
     Route: 065
     Dates: start: 20070201
  2. XELODA [Suspect]
     Route: 065
     Dates: end: 20070201
  3. AVAPRO [Concomitant]
  4. ATIVAN [Concomitant]
  5. PROTONIX [Concomitant]
  6. ATENOLOL [Concomitant]
  7. LEXAPRO [Concomitant]
  8. ZETIA [Concomitant]
  9. ZOCOR [Concomitant]
  10. OXYCODONE HCL [Concomitant]
  11. SYNTHROID [Concomitant]

REACTIONS (2)
  - PALMAR-PLANTAR ERYTHRODYSAESTHESIA SYNDROME [None]
  - THYROID FUNCTION TEST ABNORMAL [None]
